FAERS Safety Report 8469248-3 (Version None)
Quarter: 2012Q2

REPORT INFORMATION
  Report Type: 
  Country: None (occurrence: None)
  Receive Date: 20120626
  Receipt Date: 20120511
  Transmission Date: 20120825
  Serious: Yes (Death, Hospitalization)
  Sender: FDA-Public Use
  Company Number: SE-BAYER-2011-026097

PATIENT
  Age: 74 Year
  Sex: Male
  Weight: 65 kg

DRUGS (7)
  1. METOPROLOL TARTRATE [Concomitant]
     Indication: HYPERTENSION
     Dosage: DAILY DOSE 100 MG
     Route: 048
     Dates: start: 19810101
  2. SORAFENIB (RAF KINASE INHIBITOR) [Suspect]
     Indication: HEPATIC NEOPLASM MALIGNANT
     Dosage: 400 MG
     Route: 048
     Dates: start: 20110323, end: 20110324
  3. ALFUZOSIN HCL [Concomitant]
     Indication: BENIGN PROSTATIC HYPERPLASIA
     Dosage: DAILY DOSE 10 MG
     Route: 048
     Dates: start: 20010101
  4. ALPRAZOLAM [Concomitant]
     Indication: ANXIETY
     Dosage: 0.5 MG, PRN
     Route: 048
     Dates: start: 20110323
  5. ATARAX [Concomitant]
     Indication: ANXIETY
  6. ATARAX [Concomitant]
     Indication: PRURITUS
     Dosage: 25 MG, PRN
     Dates: start: 20110118
  7. FELODIPINE [Concomitant]
     Indication: HYPERTENSION
     Dosage: DAILY DOSE 5 MG
     Route: 048
     Dates: start: 19810101

REACTIONS (2)
  - MUSCLE HAEMORRHAGE [None]
  - PAIN IN EXTREMITY [None]
